FAERS Safety Report 14568015 (Version 1)
Quarter: 2018Q1

REPORT INFORMATION
  Report Type: Spontaneous
  Country: US (occurrence: US)
  Receive Date: 20180223
  Receipt Date: 20180223
  Transmission Date: 20180509
  Serious: Yes (Hospitalization, Other)
  Sender: FDA-Public Use
  Company Number: US-009507513-1802USA011100

PATIENT
  Age: 17 Year
  Sex: Female

DRUGS (6)
  1. MELATONIN [Concomitant]
     Active Substance: MELATONIN
  2. CLONAZEPAM. [Concomitant]
     Active Substance: CLONAZEPAM
  3. DESOGEN [Suspect]
     Active Substance: DESOGESTREL\ETHINYL ESTRADIOL
     Indication: MENSTRUAL CYCLE MANAGEMENT
     Dosage: ESTRADIOL?CONTAINING ORAL CONTRACEPTIVE PILLS.
     Route: 048
  4. VENLAFAXINE HYDROCHLORIDE. [Concomitant]
     Active Substance: VENLAFAXINE HYDROCHLORIDE
  5. CLONIDINE. [Concomitant]
     Active Substance: CLONIDINE
  6. TESTOSTERONE CYPIONATE. [Suspect]
     Active Substance: TESTOSTERONE CYPIONATE
     Indication: TRANSGENDER HORMONAL THERAPY
     Dosage: 25 MG, QW

REACTIONS (2)
  - Product use in unapproved indication [Unknown]
  - Pulmonary embolism [Recovering/Resolving]
